FAERS Safety Report 9349382 (Version 2)
Quarter: 2013Q3

REPORT INFORMATION
  Report Type: Spontaneous
  Country: US (occurrence: US)
  Receive Date: 20130614
  Receipt Date: 20130822
  Transmission Date: 20140515
  Serious: Yes (Hospitalization, Other)
  Sender: FDA-Public Use
  Company Number: US-BAXTER-2013BAX021990

PATIENT
  Age: 92 Year
  Sex: Male

DRUGS (4)
  1. DIANEAL LOW CALCIUM [Suspect]
     Indication: PERITONEAL DIALYSIS
     Route: 033
  2. DIANEAL PD2 [Suspect]
     Indication: PERITONEAL DIALYSIS
     Route: 033
     Dates: start: 200708
  3. DIANEAL LOW CALCIUM (ULTRABAG) [Suspect]
     Indication: PERITONEAL DIALYSIS
     Route: 033
  4. DIANEAL PD2 (ULTRABAG) [Suspect]
     Indication: PERITONEAL DIALYSIS
     Route: 033
     Dates: start: 200708

REACTIONS (7)
  - Fall [Unknown]
  - Hip fracture [Recovered/Resolved]
  - Clostridium difficile infection [Recovering/Resolving]
  - Urinary tract infection [Recovered/Resolved]
  - Enterococcal infection [Unknown]
  - Urinary tract infection [Unknown]
  - Hypotension [Recovered/Resolved]
